FAERS Safety Report 6161925-2 (Version None)
Quarter: 2009Q2

REPORT INFORMATION
  Report Type: 
  Country: None (occurrence: None)
  Receive Date: 20090421
  Receipt Date: 20090410
  Transmission Date: 20091009
  Serious: Yes (Other)
  Sender: FDA-Public Use
  Company Number: FR-BAYER-200917110GPV

PATIENT
  Age: 73 Year
  Sex: Male

DRUGS (2)
  1. NEXAVAR [Suspect]
     Indication: HEPATIC NEOPLASM
     Dosage: TOTAL DAILY DOSE: 400 MG
     Route: 048
     Dates: start: 20081201, end: 20090301
  2. EUTHYROX [Concomitant]
     Indication: HYPOTHYROIDISM
     Route: 048
     Dates: start: 20050101

REACTIONS (1)
  - CONVULSION [None]
